FAERS Safety Report 8616763-5 (Version None)
Quarter: 2012Q3

REPORT INFORMATION
  Report Type: 
  Country: None (occurrence: None)
  Receive Date: 20120823
  Receipt Date: 20120806
  Transmission Date: 20120928
  Serious: No
  Sender: FDA-Public Use
  Company Number: US-009507513-1208USA003121

PATIENT

DRUGS (3)
  1. RIBASPHERE [Suspect]
  2. VICTRELIS [Suspect]
     Indication: HEPATITIS C
     Dosage: UNK
     Route: 048
     Dates: start: 20120517
  3. PEGASYS [Suspect]

REACTIONS (4)
  - DRY MOUTH [None]
  - NAUSEA [None]
  - VOMITING [None]
  - ASTHENIA [None]
